FAERS Safety Report 24452311 (Version 1)
Quarter: 2024Q4

REPORT INFORMATION
  Report Type: Spontaneous
  Country: US (occurrence: US)
  Receive Date: 20241017
  Receipt Date: 20241017
  Transmission Date: 20250115
  Serious: No
  Sender: SUNOVION
  Company Number: US-UROVANT SCIENCES GMBH-202402-URV-000229

PATIENT
  Sex: Female
  Weight: 57.143 kg

DRUGS (5)
  1. GEMTESA [Suspect]
     Active Substance: VIBEGRON
     Dosage: 75 MG, QD
     Route: 048
     Dates: start: 202312
  2. GEMTESA [Suspect]
     Active Substance: VIBEGRON
     Indication: Cystitis interstitial
  3. GEMTESA [Suspect]
     Active Substance: VIBEGRON
     Indication: Nocturia
  4. GEMTESA [Suspect]
     Active Substance: VIBEGRON
     Indication: Pollakiuria
  5. NORTREL                            /00318901/ [Concomitant]
     Indication: Oral contraception
     Dosage: UNK

REACTIONS (1)
  - Product use issue [Unknown]
